FAERS Safety Report 7668488-0 (Version None)
Quarter: 2011Q3

REPORT INFORMATION
  Report Type: 
  Country: None (occurrence: None)
  Receive Date: 20110808
  Receipt Date: 20110801
  Transmission Date: 20111222
  Serious: Yes (Other)
  Sender: FDA-Public Use
  Company Number: US-AMGEN-USASP2011038584

PATIENT
  Sex: Male

DRUGS (5)
  1. RITUXIMAB [Concomitant]
  2. PLATELETS [Concomitant]
  3. NPLATE [Suspect]
     Indication: IDIOPATHIC THROMBOCYTOPENIC PURPURA
     Dates: start: 20110701
  4. IMMUNOGLOBULINS [Concomitant]
     Dosage: UNK
     Dates: start: 20110624
  5. CORTICOSTEROIDS [Concomitant]

REACTIONS (2)
  - THROMBOSIS [None]
  - EMBOLISM [None]
